FAERS Safety Report 10121029 (Version 1)
Quarter: 2014Q2

REPORT INFORMATION
  Report Type: Spontaneous
  Country: TW (occurrence: TW)
  Receive Date: 20140425
  Receipt Date: 20140425
  Transmission Date: 20141212
  Serious: Yes (Hospitalization)
  Sender: FDA-Public Use
  Company Number: TW-TAKEDA-2014TUS003175

PATIENT
  Age: 81 Year
  Sex: Male

DRUGS (2)
  1. FEBURIC [Suspect]
     Indication: GOUT
     Dosage: 40 MG, QD
     Route: 048
     Dates: start: 201308, end: 201308
  2. FEBURIC [Suspect]
     Indication: HYPERURICAEMIA

REACTIONS (1)
  - Drug reaction with eosinophilia and systemic symptoms [Recovered/Resolved]
